FAERS Safety Report 5771217-9 (Version None)
Quarter: 2008Q2

REPORT INFORMATION
  Report Type: 
  Country: None (occurrence: None)
  Receive Date: 20080613
  Receipt Date: 20080528
  Transmission Date: 20081010
  Serious: No
  Sender: FDA-Public Use
  Company Number: US-ABBOTT-08P-163-0453799-00

PATIENT
  Sex: Male
  Weight: 98.63 kg

DRUGS (6)
  1. HUMIRA [Suspect]
     Indication: RHEUMATOID ARTHRITIS
     Route: 058
     Dates: start: 20060201, end: 20060401
  2. HUMIRA [Suspect]
     Route: 058
     Dates: start: 20080101
  3. PREDNISONE TAB [Concomitant]
     Indication: RHEUMATOID ARTHRITIS
     Dosage: 3 - 10MG TABLETS ONCE A DAY
     Route: 048
     Dates: start: 20050101
  4. PREDNISONE TAB [Concomitant]
     Route: 048
  5. METHOTREXATE [Concomitant]
     Indication: RHEUMATOID ARTHRITIS
     Dosage: 2.5MG TABLETS X 10 TABS PER WEEK
     Route: 048
     Dates: start: 20050101
  6. FOLIC ACID [Concomitant]
     Indication: VITAMIN SUPPLEMENTATION
     Route: 048

REACTIONS (2)
  - CYST [None]
  - RASH [None]
